FAERS Safety Report 15597627 (Version 1)
Quarter: 2018Q4

REPORT INFORMATION
  Report Type: Spontaneous
  Country: GB (occurrence: FR)
  Receive Date: 20181108
  Receipt Date: 20181108
  Transmission Date: 20190205
  Serious: Yes (Other)
  Sender: FDA-Public Use
  Company Number: FR-FRESENIUS KABI-FK201811479

PATIENT
  Age: 63 Year
  Sex: Male
  Weight: 79 kg

DRUGS (2)
  1. BEVACIZUMAB. [Concomitant]
     Active Substance: BEVACIZUMAB
     Indication: METASTATIC BRONCHIAL CARCINOMA
     Route: 042
     Dates: start: 20180814
  2. PACLITAXEL INJECTION, USP [Suspect]
     Active Substance: PACLITAXEL
     Indication: METASTATIC BRONCHIAL CARCINOMA
     Route: 042
     Dates: start: 20180814

REACTIONS (4)
  - Tremor [Recovered/Resolved]
  - Hypoxia [Recovered/Resolved]
  - Hypersensitivity [Recovered/Resolved]
  - Hypertension [Recovered/Resolved]

NARRATIVE: CASE EVENT DATE: 20180814
